FAERS Safety Report 10223203 (Version 2)
Quarter: 2014Q3

REPORT INFORMATION
  Report Type: Spontaneous
  Country: US (occurrence: None)
  Receive Date: 20140605
  Receipt Date: 20140818
  Transmission Date: 20150326
  Serious: Yes (Death)
  Sender: FDA-Public Use
  Company Number: UNT-2014-001130

PATIENT
  Age: 62 Year
  Sex: Male
  Weight: 95.2 kg

DRUGS (2)
  1. REMODULIN [Suspect]
     Active Substance: TREPROSTINIL
     Indication: PULMONARY ARTERIAL HYPERTENSION
     Dosage: .155 UG/KG/MIN
     Route: 058
     Dates: start: 20140406
  2. SILDENAFIL CITRATE (SILDENAFIL CITRATE) [Concomitant]
     Active Substance: SILDENAFIL CITRATE

REACTIONS (3)
  - Chronic obstructive pulmonary disease [None]
  - Cardiac failure congestive [None]
  - Pulmonary hypertension [None]

NARRATIVE: CASE EVENT DATE: 2014
